FAERS Safety Report 11229703 (Version 1)
Quarter: 2015Q2

REPORT INFORMATION
  Report Type: Report from Study
  Country: US (occurrence: US)
  Receive Date: 20150630
  Receipt Date: 20150630
  Transmission Date: 20150821
  Serious: Yes (Other)
  Sender: FDA-Public Use
  Company Number: US-BAYER-2015-365854

PATIENT

DRUGS (1)
  1. ALKA SELTZER [Suspect]
     Active Substance: ANHYDROUS CITRIC ACID\ASPIRIN\SODIUM BICARBONATE

REACTIONS (2)
  - Medication error [None]
  - Suicidal ideation [None]
